FAERS Safety Report 23958579 (Version 1)
Quarter: 2024Q2

REPORT INFORMATION
  Report Type: Spontaneous
  Country: PK (occurrence: PK)
  Receive Date: 20240610
  Receipt Date: 20240610
  Transmission Date: 20240715
  Serious: Yes (Other)
  Sender: FDA-Public Use
  Company Number: PK-PFIZER INC-PV202400073965

PATIENT
  Age: 56 Year
  Sex: Male

DRUGS (6)
  1. ENBREL [Suspect]
     Active Substance: BENZYL ALCOHOL\ETANERCEPT
     Indication: Ankylosing spondylitis
     Dosage: 50 MG, WEEKLY
     Route: 058
     Dates: start: 20220910
  2. DYNAGAB [Concomitant]
     Indication: Product used for unknown indication
     Dosage: XX1 AFTER DINNER 1 CAP
     Route: 065
  3. Synflex [Concomitant]
     Indication: Product used for unknown indication
     Dosage: 1X1 TAKE WITH MILK
     Route: 065
  4. INSULIN HUMAN [Concomitant]
     Active Substance: INSULIN HUMAN
     Indication: Product used for unknown indication
     Dosage: 24/16 UNITS
     Route: 058
  5. DIAMICRON [Concomitant]
     Indication: Product used for unknown indication
     Dosage: 1XX AFTER BREAKFAST
     Route: 065
  6. Dapa met [Concomitant]
     Indication: Product used for unknown indication
     Dosage: 5/850 X1X ONCE A DAY
     Route: 065

REACTIONS (3)
  - Neuropathy peripheral [Unknown]
  - Diabetes mellitus [Unknown]
  - Hypertension [Unknown]
